FAERS Safety Report 20563424 (Version 2)
Quarter: 2022Q2

REPORT INFORMATION
  Report Type: Spontaneous
  Country: BG (occurrence: BG)
  Receive Date: 20220308
  Receipt Date: 20220408
  Transmission Date: 20220720
  Serious: Yes (Hospitalization)
  Sender: FDA-Public Use
  Company Number: BG-ABBVIE-22K-022-4305248-00

PATIENT
  Age: 45 Year

DRUGS (1)
  1. HUMIRA [Suspect]
     Active Substance: ADALIMUMAB
     Indication: Psoriasis
     Route: 058
     Dates: start: 201709

REACTIONS (3)
  - Mouth cyst [Unknown]
  - Localised infection [Unknown]
  - Psoriasis [Unknown]

NARRATIVE: CASE EVENT DATE: 20191101
